FAERS Safety Report 5014243-X (Version None)
Quarter: 2006Q2

REPORT INFORMATION
  Report Type: 
  Country: None (occurrence: None)
  Receive Date: 20060414
  Receipt Date: 20060217
  Transmission Date: 20061013
  Serious: No
  Sender: FDA-Public Use
  Company Number: 2006SP000837

PATIENT
  Age: 57 Year
  Sex: Female
  Weight: 63.05 kg

DRUGS (5)
  1. LUNESTA [Suspect]
     Indication: INSOMNIA
     Dosage: 2 MG;HS;ORAL
     Route: 048
     Dates: start: 20060215
  2. DOXEPIN [Concomitant]
  3. VAGIFEM [Concomitant]
  4. MULTIVITAMIN [Concomitant]
  5. LYSINE [Concomitant]

REACTIONS (2)
  - INSOMNIA [None]
  - SLEEP DISORDER [None]
